FAERS Safety Report 8490279-1 (Version None)
Quarter: 2012Q3

REPORT INFORMATION
  Report Type: 
  Country: None (occurrence: None)
  Receive Date: 20120705
  Receipt Date: 20120409
  Transmission Date: 20120928
  Serious: No
  Sender: FDA-Public Use
  Company Number: US-BAUSCH-2012BL002542

PATIENT
  Age: 40 Year
  Sex: Female

DRUGS (1)
  1. OPCON-A [Suspect]
     Indication: SEASONAL ALLERGY
     Route: 047
     Dates: start: 20120406, end: 20120407

REACTIONS (3)
  - INSTILLATION SITE PAIN [None]
  - EYE PRURITUS [None]
  - REACTION TO PRESERVATIVES [None]
